FAERS Safety Report 9170757 (Version 1)
Quarter: 2013Q1

REPORT INFORMATION
  Report Type: Spontaneous
  Country: TR (occurrence: None)
  Receive Date: 20130311
  Receipt Date: 20130311
  Transmission Date: 20140127
  Serious: Yes (Hospitalization, Other)
  Sender: FDA-Public Use
  Company Number: TR-2013-0617

PATIENT
  Sex: Male

DRUGS (2)
  1. NAVELBINE (VINORELBINE TARTRATE) INFUSION [Suspect]
     Indication: NON-SMALL CELL LUNG CANCER
     Dosage: 25 MG/M/2, (DAYS 1 AND 8), INTRAVENOUS
     Route: 042
  2. CISPLATIN (CISPLATIN) (5 MILLIGRAM) (CISPLATIN) [Suspect]
     Indication: NON-SMALL CELL LUNG CANCER
     Dosage: 100 MG/M2, DAY 1, CYCLICAL (1/21), UNKNOWN

REACTIONS (5)
  - Electrocardiogram ST segment depression [None]
  - Angina pectoris [None]
  - Ventricular extrasystoles [None]
  - Malignant neoplasm progression [None]
  - Superior vena cava syndrome [None]
